FAERS Safety Report 7285802-9 (Version None)
Quarter: 2011Q1

REPORT INFORMATION
  Report Type: 
  Country: None (occurrence: None)
  Receive Date: 20110210
  Receipt Date: 20110202
  Transmission Date: 20110831
  Serious: Yes (Hospitalization)
  Sender: FDA-Public Use
  Company Number: FR-ASTRAZENECA-2011SE06234

PATIENT
  Age: 59 Year
  Sex: Male

DRUGS (6)
  1. VASTAREL [Concomitant]
     Route: 065
  2. CRESTOR [Suspect]
     Indication: HYPERCHOLESTEROLAEMIA
     Route: 048
     Dates: start: 20050101, end: 20090101
  3. PLAVIX [Concomitant]
     Route: 065
  4. LANSOPRAZOLE [Concomitant]
     Route: 065
  5. PERMIXON [Concomitant]
     Route: 048
  6. FENOFIBRATE [Suspect]
     Indication: HYPERCHOLESTEROLAEMIA
     Route: 048
     Dates: start: 20091001

REACTIONS (1)
  - AUTONOMIC NERVOUS SYSTEM IMBALANCE [None]
